FAERS Safety Report 24025048 (Version 1)
Quarter: 2024Q2

REPORT INFORMATION
  Report Type: Spontaneous
  Country: GB (occurrence: GB)
  Receive Date: 20240628
  Receipt Date: 20240628
  Transmission Date: 20240716
  Serious: No
  Sender: FDA-Public Use
  Company Number: GB-ROCHE-3473601

PATIENT
  Sex: Female

DRUGS (1)
  1. PHESGO [Suspect]
     Active Substance: HYALURONIDASE-ZZXF\PERTUZUMAB\TRASTUZUMAB
     Indication: Breast cancer
     Dosage: 600/600MG
     Route: 058

REACTIONS (5)
  - Fatigue [Unknown]
  - Insomnia [Unknown]
  - Dysphonia [Unknown]
  - Stridor [Unknown]
  - Wheezing [Unknown]
